FAERS Safety Report 16973030 (Version 2)
Quarter: 2020Q2

REPORT INFORMATION
  Report Type: Spontaneous
  Country: NL (occurrence: NL)
  Receive Date: 20191030
  Receipt Date: 20200414
  Transmission Date: 20200713
  Serious: Yes (Life-Threatening, Hospitalization)
  Sender: FDA-Public Use
  Company Number: NL-TEVA-2019-NL-1128714

PATIENT
  Age: 71 Year
  Sex: Male

DRUGS (7)
  1. SUFENTANIL [Suspect]
     Active Substance: SUFENTANIL
     Indication: GENERAL ANAESTHESIA
     Dosage: ROUTE AND DOSAGE NOT STATED
     Route: 065
  2. SUFENTANIL [Suspect]
     Active Substance: SUFENTANIL
     Indication: PROCEDURAL PAIN
     Dosage: 0.5 MCG/ML
     Route: 008
  3. ROPIVACAINE. [Concomitant]
     Active Substance: ROPIVACAINE HYDROCHLORIDE
     Indication: PRODUCT USED FOR UNKNOWN INDICATION
     Dosage: 0.2%
     Route: 008
  4. PROPOFOL. [Concomitant]
     Active Substance: PROPOFOL
     Indication: GENERAL ANAESTHESIA
  5. SEVOFLURANE. [Concomitant]
     Active Substance: SEVOFLURANE
     Indication: MAINTENANCE OF ANAESTHESIA
  6. MORPHINE [Suspect]
     Active Substance: MORPHINE
     Dosage: 1 MG/ML. A TOTAL OF 38MG OF MORPHINE HAD BEEN ADMINISTRATED INTO THE EPIDURAL SPACE.
     Route: 008
  7. ROCURONIUM BROMIDE. [Concomitant]
     Active Substance: ROCURONIUM BROMIDE
     Indication: GENERAL ANAESTHESIA

REACTIONS (5)
  - Product administration error [Unknown]
  - Respiratory depression [Recovered/Resolved]
  - Overdose [Unknown]
  - Toxicity to various agents [Recovered/Resolved]
  - Coma [Recovered/Resolved]
